FAERS Safety Report 4269791-7 (Version None)
Quarter: 2004Q1

REPORT INFORMATION
  Report Type: 
  Country: None (occurrence: None)
  Receive Date: 20040113
  Receipt Date: 20031229
  Transmission Date: 20041129
  Serious: Yes (Death)
  Sender: FDA-Public Use
  Company Number: C2003-3001.01

PATIENT
  Age: 86 Year
  Sex: Female

DRUGS (14)
  1. CLOZAPINE [Suspect]
     Dosage: 12.5MG Q AM AND 75MG Q PRN, ORAL
     Route: 048
     Dates: end: 20031106
  2. ACETAMINOPHEN [Concomitant]
  3. CARBIDOPA/LEVODOPA [Concomitant]
  4. CIPROFLOXACIN [Concomitant]
  5. DIGOXIN [Concomitant]
  6. FUROSEMIDE [Concomitant]
  7. HYOSCYAMINE [Concomitant]
  8. LANSOPRAZOLE [Concomitant]
  9. LEVOTHYROXINE SODIUM [Concomitant]
  10. LISINOPRIL [Concomitant]
  11. MEGESTROL ACETATE [Concomitant]
  12. MILK OF MAGNESIA TAB [Concomitant]
  13. MIRTAZAPINE [Concomitant]
  14. MORPHINE SULFATE ORAL CONCENTRATE [Concomitant]

REACTIONS (2)
  - DEMENTIA ALZHEIMER'S TYPE [None]
  - GENERAL PHYSICAL HEALTH DETERIORATION [None]
